FAERS Safety Report 5072176-7 (Version None)
Quarter: 2006Q3

REPORT INFORMATION
  Report Type: 
  Country: None (occurrence: None)
  Receive Date: 20060710
  Receipt Date: 20051212
  Transmission Date: 20061208
  Serious: Yes (Life-Threatening, Hospitalization, Other)
  Sender: FDA-Public Use
  Company Number: 2005US001612

PATIENT
  Age: 71 Year
  Sex: Male
  Weight: 64.5 kg

DRUGS (7)
  1. ADENOSCAN [Suspect]
     Indication: SCAN MYOCARDIAL PERFUSION
     Dosage: 2.99 MG/ML, IV NOS
     Route: 042
     Dates: start: 20050921, end: 20050921
  2. ALBUTEROL [Concomitant]
  3. ATROVENT [Concomitant]
  4. ZOCOR [Concomitant]
  5. ASPIRIN [Concomitant]
  6. PLAVIX [Concomitant]
  7. BUMEX [Concomitant]

REACTIONS (3)
  - CHRONIC OBSTRUCTIVE PULMONARY DISEASE [None]
  - RESPIRATORY FAILURE [None]
  - TACHYARRHYTHMIA [None]
